FAERS Safety Report 10525621 (Version 3)
Quarter: 2014Q4

REPORT INFORMATION
  Report Type: Report from Study
  Country: AU (occurrence: AU)
  Receive Date: 20141017
  Receipt Date: 20141113
  Transmission Date: 20150528
  Serious: Yes (Other)
  Sender: FDA-Public Use
  Company Number: PHHY2014AU130359

PATIENT
  Age: 67 Year
  Sex: Female
  Weight: 63 kg

DRUGS (24)
  1. CLOZARIL [Suspect]
     Active Substance: CLOZAPINE
     Indication: SCHIZOPHRENIA
     Dosage: UNK
     Route: 048
  2. CLOZARIL [Suspect]
     Active Substance: CLOZAPINE
     Dosage: UNK (UP TO 75 MG)
     Route: 048
     Dates: start: 2011
  3. AMISULPRIDE [Concomitant]
     Active Substance: AMISULPRIDE
     Indication: PRODUCT USED FOR UNKNOWN INDICATION
     Dosage: 500 MG, BID
     Route: 048
     Dates: start: 20140904
  4. OXAZEPAM. [Concomitant]
     Active Substance: OXAZEPAM
     Indication: AGITATION
     Dosage: 7.5 MG, Q3H (MAX. 30 MG PRN)
     Route: 048
     Dates: start: 20140904
  5. METFORMIN [Concomitant]
     Active Substance: METFORMIN HYDROCHLORIDE
     Indication: PRODUCT USED FOR UNKNOWN INDICATION
     Dosage: 500 MG, BID (SLOW RELEASE)
     Route: 048
     Dates: start: 20140904
  6. ESCITALOPRAM [Concomitant]
     Active Substance: ESCITALOPRAM OXALATE
     Indication: PRODUCT USED FOR UNKNOWN INDICATION
     Dosage: 20 MG, MANE
     Route: 048
     Dates: start: 20140904
  7. OXAZEPAM. [Concomitant]
     Active Substance: OXAZEPAM
     Dosage: 7.5 MG, UNK
     Route: 048
     Dates: start: 20140920
  8. OXAZEPAM. [Concomitant]
     Active Substance: OXAZEPAM
     Dosage: 7.5 MG, UNK
     Route: 048
     Dates: start: 20141001
  9. FENOFIBRATE. [Concomitant]
     Active Substance: FENOFIBRATE
     Indication: PRODUCT USED FOR UNKNOWN INDICATION
     Dosage: 145 MG, MANE
     Route: 048
     Dates: start: 20140904
  10. OLANZAPINE. [Concomitant]
     Active Substance: OLANZAPINE
     Dosage: 5 MG, UNK
     Route: 048
     Dates: start: 20140923
  11. OLANZAPINE. [Concomitant]
     Active Substance: OLANZAPINE
     Dosage: 10 MG, UNK
     Route: 065
     Dates: start: 20140928
  12. OXAZEPAM. [Concomitant]
     Active Substance: OXAZEPAM
     Dosage: 7.5 MG, UNK
     Route: 048
     Dates: start: 20140919
  13. OLANZAPINE. [Concomitant]
     Active Substance: OLANZAPINE
     Indication: AGITATION
     Dosage: 5 TO 10 MG (MAX. 20MG PRN)
     Route: 048
     Dates: start: 20140904
  14. PARACETAMOL [Concomitant]
     Active Substance: ACETAMINOPHEN
     Indication: PRODUCT USED FOR UNKNOWN INDICATION
     Dosage: 1 G, TID
     Route: 048
     Dates: start: 20140904
  15. CLOZARIL [Suspect]
     Active Substance: CLOZAPINE
     Dosage: 50 (UNIT UNSPECIFIED)
     Route: 048
     Dates: start: 20141007, end: 20141103
  16. PERINDOPRIL [Concomitant]
     Active Substance: PERINDOPRIL
     Indication: PRODUCT USED FOR UNKNOWN INDICATION
     Dosage: UNK
     Route: 048
     Dates: start: 20140904
  17. ATORVASTATIN [Concomitant]
     Active Substance: ATORVASTATIN
     Indication: PRODUCT USED FOR UNKNOWN INDICATION
     Dosage: 40 MG, MANE
     Route: 048
     Dates: start: 20140904
  18. OLANZAPINE. [Concomitant]
     Active Substance: OLANZAPINE
     Dosage: 5 MG, UNK
     Route: 048
     Dates: start: 20140911
  19. OLANZAPINE. [Concomitant]
     Active Substance: OLANZAPINE
     Dosage: 5, UNSPECIFIED UNIT
     Route: 048
     Dates: start: 20140919
  20. WARFARIN [Concomitant]
     Active Substance: WARFARIN
     Indication: PRODUCT USED FOR UNKNOWN INDICATION
     Route: 065
     Dates: start: 20140904
  21. OXAZEPAM. [Concomitant]
     Active Substance: OXAZEPAM
     Dosage: 7.5 MG, UNK
     Route: 048
     Dates: start: 20140920
  22. OXAZEPAM. [Concomitant]
     Active Substance: OXAZEPAM
     Dosage: 7.5 MG, UNK
     Route: 048
     Dates: start: 20140928
  23. OLANZAPINE. [Concomitant]
     Active Substance: OLANZAPINE
     Dosage: 5, UNSPECIFIED UNIT
     Route: 048
     Dates: start: 20140921
  24. THYROXINE [Concomitant]
     Active Substance: LEVOTHYROXINE
     Indication: PRODUCT USED FOR UNKNOWN INDICATION
     Dosage: 500 UG, MANE
     Route: 048
     Dates: start: 20140904

REACTIONS (15)
  - C-reactive protein increased [Recovered/Resolved]
  - Blood triglycerides increased [Unknown]
  - Blood glucose increased [Recovered/Resolved]
  - Cardiac aneurysm [Unknown]
  - Mitral valve disease [Unknown]
  - Blood urea decreased [Recovered/Resolved]
  - Pulmonary valve incompetence [Unknown]
  - Pericardial effusion [Unknown]
  - Atrial septal defect [Unknown]
  - Blood urea nitrogen/creatinine ratio decreased [Recovered/Resolved]
  - Globulins decreased [Unknown]
  - Left atrial dilatation [Unknown]
  - Tricuspid valve incompetence [Unknown]
  - Mitral valve incompetence [Unknown]
  - Sedation [Unknown]

NARRATIVE: CASE EVENT DATE: 20110330
